FAERS Safety Report 23230870 (Version 1)
Quarter: 2023Q4

REPORT INFORMATION
  Report Type: Spontaneous
  Country: US (occurrence: None)
  Receive Date: 20231127
  Receipt Date: 20231127
  Transmission Date: 20240110
  Serious: No
  Sender: FDA-Public Use
  Company Number: 2023A257744

PATIENT
  Age: 81 Year
  Sex: Female

DRUGS (2)
  1. CRESTOR [Suspect]
     Active Substance: ROSUVASTATIN CALCIUM
     Dosage: UNKNOWN DOSAGE IN UNKNOWN FREQUENCY
  2. PRAVASTATIN [Suspect]
     Active Substance: PRAVASTATIN
     Dosage: UNKNOWN DOSAGE IN UNKNOWN FREQUENCY

REACTIONS (3)
  - Musculoskeletal stiffness [Unknown]
  - Arthralgia [Unknown]
  - Myalgia [Unknown]
